FAERS Safety Report 5594266-2 (Version None)
Quarter: 2007Q4

REPORT INFORMATION
  Report Type: 
  Country: None (occurrence: None)
  Receive Date: 20071218
  Receipt Date: 20070508
  Transmission Date: 20080405
  Serious: Yes (Hospitalization, Other)
  Sender: FDA-Public Use
  Company Number: 2007037640

PATIENT
  Age: 43 Year
  Sex: Female

DRUGS (1)
  1. BEXTRA [Suspect]
     Indication: PAIN IN JAW
     Dosage: 40 MG (20 MG, 2 IN 1 D)

REACTIONS (1)
  - CARDIOMYOPATHY [None]
